FAERS Safety Report 19581098 (Version 2)
Quarter: 2021Q3

REPORT INFORMATION
  Report Type: Report from Study
  Country: ES (occurrence: ES)
  Receive Date: 20210719
  Receipt Date: 20210901
  Transmission Date: 20211014
  Serious: Yes (Hospitalization)
  Sender: FDA-Public Use
  Company Number: ES-ROCHE-2871174

PATIENT
  Age: 56 Year
  Sex: Male

DRUGS (4)
  1. CABOZANTINIB [Suspect]
     Active Substance: CABOZANTINIB
     Indication: ENDOCRINE NEOPLASM
     Dosage: ON 07/JUL/2021, HE RECEIVED MOST RECENT DOSE OF CABOZANTINIB (20 MG) PRIOR TO ONSET OF AE/SAE.
     Route: 065
     Dates: start: 20210413
  2. JANUVIA [Concomitant]
     Active Substance: SITAGLIPTIN PHOSPHATE
     Indication: DIABETES MELLITUS
     Route: 048
  3. AMLODIPINO [Concomitant]
     Active Substance: AMLODIPINE BESYLATE
     Indication: HYPERTENSION
     Route: 048
  4. ATEZOLIZUMAB. [Suspect]
     Active Substance: ATEZOLIZUMAB
     Indication: ENDOCRINE NEOPLASM
     Dosage: ON 06/JUL/2021, HE RECEIVED MOST RECENT DOSE OF ATEZOLIZUMAB (1200 MG) PRIOR TO ONSET OF AE/SAE.
     Route: 065
     Dates: start: 20210413

REACTIONS (3)
  - Abdominal pain [Recovered/Resolved]
  - Hypotension [Recovered/Resolved]
  - Adrenal insufficiency [Recovered/Resolved]

NARRATIVE: CASE EVENT DATE: 20210708
